FAERS Safety Report 10051684 (Version 2)
Quarter: 2014Q2

REPORT INFORMATION
  Report Type: Report from Study
  Country: US (occurrence: US)
  Receive Date: 20140401
  Receipt Date: 20140409
  Transmission Date: 20141212
  Serious: Yes (Hospitalization, Other)
  Sender: FDA-Public Use
  Company Number: US-ABBVIE-14P-163-1215690-00

PATIENT
  Sex: Male

DRUGS (13)
  1. HUMIRA [Suspect]
     Indication: CROHN^S DISEASE
     Dates: start: 20140218
  2. HUMIRA [Suspect]
     Dosage: EVERY FRIDAY
     Route: 058
  3. ANTIBIOTICS [Concomitant]
     Indication: HELICOBACTER INFECTION
  4. FERROUS SULFATE [Concomitant]
     Indication: MINERAL SUPPLEMENTATION
  5. PREDNISONE [Concomitant]
     Indication: CROHN^S DISEASE
  6. METHOTREXATE [Concomitant]
     Indication: CROHN^S DISEASE
  7. ZOFRAN [Concomitant]
     Indication: NAUSEA
  8. ZOFRAN [Concomitant]
     Indication: VOMITING
  9. ZOFRAN [Concomitant]
     Indication: ABDOMINAL DISCOMFORT
  10. HYDROCODONE [Concomitant]
     Indication: PAIN
  11. CALCIUM CARBONATE [Concomitant]
     Indication: MINERAL SUPPLEMENTATION
  12. ZINC SULFATE [Concomitant]
     Indication: MINERAL SUPPLEMENTATION
  13. FOLIC ACID [Concomitant]
     Indication: VITAMIN SUPPLEMENTATION

REACTIONS (3)
  - Peripheral embolism [Unknown]
  - Crohn^s disease [Recovering/Resolving]
  - Helicobacter infection [Unknown]
